FAERS Safety Report 23494798 (Version 1)
Quarter: 2024Q1

REPORT INFORMATION
  Report Type: Spontaneous
  Country: FR (occurrence: FR)
  Receive Date: 20240207
  Receipt Date: 20240207
  Transmission Date: 20240410
  Serious: Yes (Hospitalization)
  Sender: FDA-Public Use
  Company Number: None

PATIENT
  Age: 48 Year
  Sex: Male

DRUGS (3)
  1. ERBITUX [Suspect]
     Active Substance: CETUXIMAB
     Indication: Squamous cell carcinoma
     Dosage: 625 MG, WEEKLY (1/W), 625 MG FOR C1 THEN 390 MG FOR C2 ON 14-DEC C3 ON 21 DEC AND C4 ON 29 DEC
     Route: 042
     Dates: start: 20231206
  2. ERBITUX [Suspect]
     Active Substance: CETUXIMAB
     Dosage: 390 MG, WEEKLY (1/W)
     Route: 042
     Dates: start: 20231214, end: 20231229
  3. PEMBROLIZUMAB [Suspect]
     Active Substance: PEMBROLIZUMAB
     Indication: Squamous cell carcinoma
     Dosage: 200 MG, WEEKLY (1/W), 12 COURSES IN TOTAL FROM 09 MARCH 2023 TO 28 NOVEMBER 2023
     Route: 042
     Dates: start: 20230309, end: 20231128

REACTIONS (1)
  - Extremity necrosis [Not Recovered/Not Resolved]

NARRATIVE: CASE EVENT DATE: 20231229
